FAERS Safety Report 20478292 (Version 1)
Quarter: 2022Q1

REPORT INFORMATION
  Report Type: Spontaneous
  Country: AU (occurrence: AU)
  Receive Date: 20220216
  Receipt Date: 20220216
  Transmission Date: 20220423
  Serious: Yes (Other)
  Sender: FDA-Public Use
  Company Number: AU-ALKEM LABORATORIES LIMITED-AU-ALKEM-2022-00931

PATIENT
  Age: 64 Year
  Sex: Male

DRUGS (4)
  1. MELOXICAM [Suspect]
     Active Substance: MELOXICAM
     Indication: Product used for unknown indication
     Dosage: UNK
     Route: 065
  2. METFORMIN HYDROCHLORIDE [Suspect]
     Active Substance: METFORMIN HYDROCHLORIDE
     Indication: Product used for unknown indication
     Dosage: UNK
     Route: 065
  3. PERINDOPRIL [Suspect]
     Active Substance: PERINDOPRIL
     Indication: Product used for unknown indication
     Dosage: UNK
     Route: 065
  4. PANADOL [Concomitant]
     Active Substance: ACETAMINOPHEN
     Indication: Product used for unknown indication
     Dosage: UNK
     Route: 065

REACTIONS (19)
  - Cardiac failure [Unknown]
  - Blood pressure decreased [Unknown]
  - Bundle branch block left [Unknown]
  - Decreased appetite [Unknown]
  - Dizziness [Unknown]
  - Dizziness postural [Unknown]
  - Dyspnoea [Unknown]
  - Dyspnoea exertional [Unknown]
  - Ejection fraction decreased [Unknown]
  - Exercise tolerance decreased [Unknown]
  - Gout [Unknown]
  - Heart rate increased [Unknown]
  - Insomnia [Unknown]
  - Iron deficiency [Unknown]
  - Oedema [Unknown]
  - Polyuria [Unknown]
  - Presyncope [Unknown]
  - Swelling [Unknown]
  - Weight increased [Unknown]
